FAERS Safety Report 10501253 (Version 2)
Quarter: 2015Q1

REPORT INFORMATION
  Report Type: Spontaneous
  Country: GB (occurrence: GB)
  Receive Date: 20141007
  Receipt Date: 20150217
  Transmission Date: 20150720
  Serious: Yes (Life-Threatening, Hospitalization)
  Sender: FDA-Public Use
  Company Number: GB-009507513-1410GBR002847

PATIENT
  Age: 47 Year
  Sex: Male

DRUGS (10)
  1. NYSTATIN. [Concomitant]
     Active Substance: NYSTATIN
     Dosage: UNK
  2. ACETAMINOPHEN. [Concomitant]
     Active Substance: ACETAMINOPHEN
     Dosage: 500 MG, QID
  3. LANSOPRAZOLE. [Concomitant]
     Active Substance: LANSOPRAZOLE
     Dosage: UNK
  4. ALENDRONATE SODIUM. [Suspect]
     Active Substance: ALENDRONATE SODIUM
     Dosage: UNK
     Route: 048
  5. LANSOPRAZOLE. [Concomitant]
     Active Substance: LANSOPRAZOLE
     Dosage: 30 MG, BID
  6. FERROUS SULFATE [Concomitant]
     Active Substance: FERROUS SULFATE\FERROUS SULFATE, DRIED
     Dosage: 200 MG, TID
  7. ORAMORPH SR SUSTAINED RELEASE [Concomitant]
     Active Substance: MORPHINE SULFATE
     Dosage: 2.5-5MG AS NECESSARY
  8. PREDNISOLONE. [Suspect]
     Active Substance: PREDNISOLONE
     Dosage: 30 MG, IN THE MORNING.
     Route: 048
  9. SULFAMETHOXAZOLE (+) TRIMETHOPRIM [Concomitant]
     Active Substance: SULFAMETHOXAZOLE\TRIMETHOPRIM
     Dosage: 480 MG, QD
  10. NONSTEROIDAL ANTI-INFLAMMATORY DRUG (UNSPECIFIED) [Suspect]
     Active Substance: UNSPECIFIED INGREDIENT
     Dosage: UNK

REACTIONS (6)
  - Upper gastrointestinal haemorrhage [Recovering/Resolving]
  - Rectal haemorrhage [Recovering/Resolving]
  - Abdominal pain [Recovering/Resolving]
  - Gastritis erosive [Recovering/Resolving]
  - Barrett^s oesophagus [Recovering/Resolving]
  - Peptic ulcer [Recovering/Resolving]
